FAERS Safety Report 7941476-2 (Version None)
Quarter: 2011Q4

REPORT INFORMATION
  Report Type: 
  Country: None (occurrence: None)
  Receive Date: 20111128
  Receipt Date: 20111121
  Transmission Date: 20120403
  Serious: Yes (Hospitalization, Other)
  Sender: FDA-Public Use
  Company Number: CA-TEVA-310157USA

PATIENT
  Age: 47 Year
  Sex: Female

DRUGS (5)
  1. VENLAFAXINE [Concomitant]
     Dosage: 9.375 MILLIGRAM;
  2. DIAZEPAM [Concomitant]
  3. ETHANOL [Suspect]
  4. VENLAFAXINE [Suspect]
  5. QUETIAPINE [Concomitant]

REACTIONS (3)
  - OVERDOSE [None]
  - RHABDOMYOLYSIS [None]
  - BEZOAR [None]
